FAERS Safety Report 21935824 (Version 1)
Quarter: 2023Q1

REPORT INFORMATION
  Report Type: Spontaneous
  Country: HR (occurrence: None)
  Receive Date: 20230201
  Receipt Date: 20230201
  Transmission Date: 20230418
  Serious: Yes (Other)
  Sender: FDA-Public Use
  Company Number: 2023A021867

PATIENT
  Age: 43 Year
  Sex: Male
  Weight: 150 kg

DRUGS (4)
  1. SEROQUEL [Suspect]
     Active Substance: QUETIAPINE FUMARATE
     Route: 048
     Dates: start: 202212, end: 202212
  2. AKINETON [Suspect]
     Active Substance: BIPERIDEN HYDROCHLORIDE
     Dates: start: 202212, end: 202212
  3. RIVOTRIL [Concomitant]
     Active Substance: CLONAZEPAM
  4. WELLBUTRIN [Concomitant]
     Active Substance: BUPROPION HYDROCHLORIDE

REACTIONS (4)
  - Overdose [Unknown]
  - Drug dependence [Unknown]
  - Mydriasis [Unknown]
  - Somnolence [Unknown]

NARRATIVE: CASE EVENT DATE: 20221201
